FAERS Safety Report 24401051 (Version 2)
Quarter: 2025Q1

REPORT INFORMATION
  Report Type: Report from Study
  Country: US (occurrence: US)
  Receive Date: 20241006
  Receipt Date: 20250101
  Transmission Date: 20250409
  Serious: Yes (Hospitalization)
  Sender: ABBVIE
  Company Number: US-ABBVIE-5949514

PATIENT
  Age: 45 Year
  Sex: Male

DRUGS (1)
  1. SKYRIZI [Suspect]
     Active Substance: RISANKIZUMAB-RZAA
     Indication: Crohn^s disease
     Route: 042
     Dates: start: 202406

REACTIONS (7)
  - Small intestine ulcer [Recovered/Resolved]
  - Inflammatory marker increased [Recovered/Resolved]
  - Thyroid hormones increased [Not Recovered/Not Resolved]
  - Illness [Recovered/Resolved]
  - Rectal haemorrhage [Unknown]
  - Drug ineffective [Unknown]
  - Crohn^s disease [Unknown]

NARRATIVE: CASE EVENT DATE: 20240101
